FAERS Safety Report 6538425-0 (Version None)
Quarter: 2010Q1

REPORT INFORMATION
  Report Type: 
  Country: None (occurrence: None)
  Receive Date: 20100114
  Receipt Date: 20091026
  Transmission Date: 20100710
  Serious: No
  Sender: FDA-Public Use
  Company Number: US-TYCO HEALTHCARE/MALLINCKRODT-T200901942

PATIENT
  Sex: Female

DRUGS (11)
  1. OXYCODONE HCL AND ACETAMINOPHEN [Suspect]
     Indication: PAIN
     Dosage: 2 TABS Q6H, PRN
     Route: 048
     Dates: start: 20091021
  2. XANAX [Concomitant]
     Dosage: 0.5 MG, UNK
     Route: 048
  3. SEREVENT                           /00954701/ [Concomitant]
     Dosage: 50 UG, INHALED
  4. NEXIUM [Concomitant]
     Dosage: 40 MG, UNK
     Route: 048
  5. IBUPROFEN [Concomitant]
     Dosage: 800 MG, UNK
     Route: 048
  6. METHOCARBAMOL [Concomitant]
     Dosage: 750 MG, UNK
     Route: 048
  7. THYROID TAB [Concomitant]
     Dosage: 60 MG, 1/2 TAB, QD
     Route: 048
  8. ZOMIG [Concomitant]
     Dosage: 5 MG, QD
     Route: 048
  9. VIVELLE-DOT [Concomitant]
     Dosage: 0.1 MG, QD
     Route: 048
  10. FENTANYL [Concomitant]
     Dosage: 50 UG, UNK
     Route: 062
     Dates: start: 20080101, end: 20091021
  11. FENTANYL [Concomitant]
     Dosage: 75 UG, UNK
     Route: 062
     Dates: start: 20091021, end: 20091001

REACTIONS (3)
  - CHEST DISCOMFORT [None]
  - MUSCLE SPASMS [None]
  - PRURITUS GENERALISED [None]
